FAERS Safety Report 9834673 (Version 1)
Quarter: 2014Q1

REPORT INFORMATION
  Report Type: Spontaneous
  Country: US (occurrence: US)
  Receive Date: 20140122
  Receipt Date: 20140122
  Transmission Date: 20141002
  Serious: No
  Sender: FDA-Public Use
  Company Number: US-TEVA-457704USA

PATIENT
  Age: 25 Year
  Sex: Female
  Weight: 71.73 kg

DRUGS (2)
  1. PARAGARD 380A [Suspect]
     Indication: CONTRACEPTION
     Route: 015
     Dates: start: 20140116, end: 20140116
  2. PARAGARD 380A [Suspect]
     Route: 015
     Dates: start: 20140116

REACTIONS (1)
  - Muscle spasms [Recovered/Resolved]
